FAERS Safety Report 9160264 (Version 2)
Quarter: 2013Q2

REPORT INFORMATION
  Report Type: Spontaneous
  Country: DE (occurrence: DE)
  Receive Date: 20130313
  Receipt Date: 20130401
  Transmission Date: 20140414
  Serious: Yes (Other)
  Sender: FDA-Public Use
  Company Number: DE-ROCHE-1201371

PATIENT
  Sex: Female

DRUGS (1)
  1. HERCEPTIN [Suspect]
     Indication: METASTATIC NEOPLASM
     Route: 065
     Dates: start: 2012

REACTIONS (4)
  - Hypersensitivity [Unknown]
  - Eyelid oedema [Unknown]
  - Rash pustular [Unknown]
  - Dry eye [Unknown]
